FAERS Safety Report 10142575 (Version 1)
Quarter: 2014Q2

REPORT INFORMATION
  Report Type: Spontaneous
  Country: BR (occurrence: BR)
  Receive Date: 20140430
  Receipt Date: 20140430
  Transmission Date: 20141212
  Serious: Yes (Hospitalization, Other)
  Sender: FDA-Public Use
  Company Number: BR-ROCHE-1391738

PATIENT
  Age: 79 Year
  Sex: Female
  Weight: 62 kg

DRUGS (3)
  1. XELODA [Suspect]
     Indication: COLORECTAL CANCER
     Dosage: 4 TABS DAILY
     Route: 048
     Dates: start: 20131114
  2. XELODA [Suspect]
     Dosage: ONE IN THE MORNING AND TWO AT NIGHT
     Route: 048
  3. ENALAPRIL MALEATE [Concomitant]
     Indication: HYPERTENSION
     Route: 048
     Dates: start: 2011

REACTIONS (4)
  - Abdominal pain [Not Recovered/Not Resolved]
  - Vomiting [Not Recovered/Not Resolved]
  - Decreased appetite [Not Recovered/Not Resolved]
  - Hernia [Not Recovered/Not Resolved]
